FAERS Safety Report 7102015-1 (Version None)
Quarter: 2010Q4

REPORT INFORMATION
  Report Type: 
  Country: None (occurrence: None)
  Receive Date: 20101115
  Receipt Date: 20101101
  Transmission Date: 20110411
  Serious: Yes (Other)
  Sender: FDA-Public Use
  Company Number: US-ROCHE-718946

PATIENT
  Sex: Female
  Weight: 49.9 kg

DRUGS (2)
  1. ACCUTANE [Suspect]
     Indication: ACNE
     Route: 065
     Dates: start: 19910812, end: 19920101
  2. ACCUTANE [Suspect]
     Route: 065
     Dates: start: 19940816, end: 19941201

REACTIONS (9)
  - ACNE [None]
  - COLITIS ULCERATIVE [None]
  - DEPRESSION [None]
  - ECZEMA [None]
  - EPISTAXIS [None]
  - GASTROINTESTINAL INJURY [None]
  - INFLAMMATORY BOWEL DISEASE [None]
  - SUICIDAL IDEATION [None]
  - VIRAL INFECTION [None]
